FAERS Safety Report 6474831-0 (Version None)
Quarter: 2009Q4

REPORT INFORMATION
  Report Type: 
  Country: None (occurrence: None)
  Receive Date: 20091204
  Receipt Date: 20090520
  Transmission Date: 20100525
  Serious: Yes (Other)
  Sender: FDA-Public Use
  Company Number: MX-ELI_LILLY_AND_COMPANY-MX200902004908

PATIENT
  Age: 14 Year
  Sex: Male
  Weight: 70 kg

DRUGS (6)
  1. STRATTERA [Suspect]
     Indication: ATTENTION DEFICIT/HYPERACTIVITY DISORDER
     Dosage: 10 MG, DAILY (1/D)
     Route: 048
     Dates: start: 20081101
  2. STRATTERA [Suspect]
     Dosage: 40 MG, DAILY (1/D)
     Route: 048
     Dates: end: 20081201
  3. STRATTERA [Suspect]
     Dosage: 10 MG, DAILY (1/D)
     Route: 048
     Dates: start: 20090101, end: 20090201
  4. CARBAMAZEPINE [Concomitant]
     Dosage: 200 MG, EVERY 8 HRS
     Route: 065
  5. VALPROATE SODIUM [Concomitant]
     Dosage: 200 UG, EVERY 8 HRS
     Route: 065
  6. RISPERIDONE [Concomitant]
     Dosage: 2 MG, DAILY (1/D)
     Route: 065

REACTIONS (3)
  - HEPATIC ENZYME INCREASED [None]
  - HEPATIC PAIN [None]
  - LIVER DISORDER [None]
